FAERS Safety Report 8269022-7 (Version None)
Quarter: 2012Q1

REPORT INFORMATION
  Report Type: 
  Country: None (occurrence: None)
  Receive Date: 20120327
  Receipt Date: 20090731
  Transmission Date: 20120608
  Serious: Yes (Other)
  Sender: FDA-Public Use
  Company Number: PHEH2009US08643

PATIENT
  Age: 83 Year
  Sex: Female

DRUGS (5)
  1. SYNTHROID [Concomitant]
  2. VITAMIN D [Concomitant]
  3. GLEEVEC [Suspect]
     Indication: ACUTE MYELOID LEUKAEMIA
     Dosage: 300 MG DAILY
     Dates: start: 20060201
  4. FOLIC ACID [Concomitant]
  5. TRICOR [Concomitant]

REACTIONS (4)
  - OEDEMA PERIPHERAL [None]
  - OEDEMA MOUTH [None]
  - EYE SWELLING [None]
  - DIARRHOEA [None]
